FAERS Safety Report 6308242-5 (Version None)
Quarter: 2009Q3

REPORT INFORMATION
  Report Type: 
  Country: None (occurrence: None)
  Receive Date: 20090813
  Receipt Date: 20090806
  Transmission Date: 20100115
  Serious: Yes (Other)
  Sender: FDA-Public Use
  Company Number: GB-BAYER-200911573BNE

PATIENT
  Sex: Female

DRUGS (2)
  1. SORAFENIB [Suspect]
     Indication: DRUG USE FOR UNKNOWN INDICATION
  2. MINI-PILL [Concomitant]
     Indication: CONTRACEPTION

REACTIONS (2)
  - ABORTION SPONTANEOUS [None]
  - NO ADVERSE EVENT [None]
